FAERS Safety Report 9098212 (Version 1)
Quarter: 2013Q1

REPORT INFORMATION
  Report Type: Spontaneous
  Country: DE (occurrence: DE)
  Receive Date: 20130213
  Receipt Date: 20130213
  Transmission Date: 20140127
  Serious: Yes (Other)
  Sender: FDA-Public Use
  Company Number: GXKR2013DE000819

PATIENT
  Sex: Female

DRUGS (1)
  1. AMOXIHEXAL [Suspect]
     Dosage: 1000 MG, TID
     Route: 048

REACTIONS (2)
  - Circulatory collapse [Unknown]
  - Blood pressure decreased [Unknown]
